FAERS Safety Report 4755726-7 (Version None)
Quarter: 2005Q3

REPORT INFORMATION
  Report Type: 
  Country: None (occurrence: None)
  Receive Date: 20050830
  Receipt Date: 20050714
  Transmission Date: 20060218
  Serious: No
  Sender: FDA-Public Use
  Company Number: US-BRISTOL-MYERS SQUIBB COMPANY-13038260

PATIENT
  Age: 44 Year
  Sex: Male
  Weight: 134 kg

DRUGS (5)
  1. ABILIFY [Suspect]
     Indication: SCHIZOPHRENIA
  2. METFORMIN HCL [Suspect]
     Dates: start: 20050101
  3. WELLBUTRIN [Concomitant]
     Dates: start: 20050101, end: 20050101
  4. TRAZODONE HCL [Concomitant]
  5. AVANDIA [Concomitant]
     Dates: start: 20050101

REACTIONS (4)
  - AGORAPHOBIA [None]
  - BLOOD GLUCOSE INCREASED [None]
  - FATIGUE [None]
  - SUSPICIOUSNESS [None]
